FAERS Safety Report 20063734 (Version 2)
Quarter: 2022Q2

REPORT INFORMATION
  Report Type: Report from Study
  Country: US (occurrence: US)
  Receive Date: 20211112
  Receipt Date: 20220530
  Transmission Date: 20220721
  Serious: No
  Sender: FDA-Public Use
  Company Number: US-KYOWAKIRIN-2021BKK018801

PATIENT

DRUGS (1)
  1. CRYSVITA [Suspect]
     Active Substance: BUROSUMAB-TWZA
     Indication: Hereditary hypophosphataemic rickets
     Dosage: 50 MG, ONCE EVERY 14 DAYS
     Route: 058
     Dates: start: 201509

REACTIONS (1)
  - Quarantine [Recovered/Resolved]

NARRATIVE: CASE EVENT DATE: 20211101
